FAERS Safety Report 8613493-0 (Version None)
Quarter: 2012Q3

REPORT INFORMATION
  Report Type: 
  Country: None (occurrence: None)
  Receive Date: 20120823
  Receipt Date: 20120807
  Transmission Date: 20120928
  Serious: Yes (Other)
  Sender: FDA-Public Use
  Company Number: JP-MERCK-1208JPN005475

PATIENT

DRUGS (3)
  1. CORTICOSTEROIDS (UNSPECIFIED) [Concomitant]
  2. FAMOTIDINE [Suspect]
     Dosage: UNK
     Route: 048
     Dates: start: 20100101, end: 20120726
  3. DANTRIUM [Suspect]
     Indication: QUADRIPLEGIA
     Dosage: UNK
     Route: 048
     Dates: start: 20100101, end: 20120726

REACTIONS (2)
  - TACHYCARDIA [None]
  - OFF LABEL USE [None]
